FAERS Safety Report 5830006-7 (Version None)
Quarter: 2008Q3

REPORT INFORMATION
  Report Type: 
  Country: None (occurrence: None)
  Receive Date: 20080731
  Receipt Date: 20080731
  Transmission Date: 20090109
  Serious: Yes (Life-Threatening)
  Sender: FDA-Public Use
  Company Number: None

PATIENT
  Age: 93 Year
  Sex: Male
  Weight: 68.0396 kg

DRUGS (2)
  1. LEVAQUIN [Suspect]
     Indication: PNEUMONIA
     Dosage: IV DRIP
     Route: 041
     Dates: start: 20080721, end: 20080721
  2. LEVAQUIN [Suspect]
     Indication: PNEUMONIA
     Dosage: IV DRIP
     Route: 041
     Dates: start: 20080722, end: 20080722

REACTIONS (7)
  - BLOOD PRESSURE SYSTOLIC INCREASED [None]
  - CONFUSIONAL STATE [None]
  - DEHYDRATION [None]
  - HALLUCINATION, AUDITORY [None]
  - HALLUCINATION, VISUAL [None]
  - LETHARGY [None]
  - PYREXIA [None]
